FAERS Safety Report 18489621 (Version 1)
Quarter: 2020Q4

REPORT INFORMATION
  Report Type: Spontaneous
  Country: US (occurrence: US)
  Receive Date: 20201110
  Receipt Date: 20201110
  Transmission Date: 20210114
  Serious: Yes (Disabling)
  Sender: FDA-Public Use
  Company Number: None

PATIENT
  Age: 52 Year
  Sex: Female
  Weight: 77.85 kg

DRUGS (2)
  1. HYDROXYCHLOROQUINE [Suspect]
     Active Substance: HYDROXYCHLOROQUINE
     Indication: CONNECTIVE TISSUE DISORDER
     Dosage: ?          QUANTITY:1 TABLET(S);?
     Route: 048
     Dates: start: 20200501, end: 20200731
  2. HYDROXYCHLOROQUINE [Suspect]
     Active Substance: HYDROXYCHLOROQUINE
     Indication: ARTHRITIS
     Dosage: ?          QUANTITY:1 TABLET(S);?
     Route: 048
     Dates: start: 20200501, end: 20200731

REACTIONS (15)
  - Vision blurred [None]
  - Disease recurrence [None]
  - Arthritis [None]
  - Joint swelling [None]
  - Bone neoplasm [None]
  - Asthenopia [None]
  - Product complaint [None]
  - Product substitution issue [None]
  - Rash [None]
  - Arthralgia [None]
  - Arthropathy [None]
  - Joint range of motion decreased [None]
  - Connective tissue disorder [None]
  - Autoimmune disorder [None]
  - Nausea [None]

NARRATIVE: CASE EVENT DATE: 20200501
